FAERS Safety Report 16397064 (Version 1)
Quarter: 2019Q2

REPORT INFORMATION
  Report Type: Spontaneous
  Country: IT (occurrence: IT)
  Receive Date: 20190606
  Receipt Date: 20190606
  Transmission Date: 20190711
  Serious: Yes (Life-Threatening, Hospitalization, Other)
  Sender: FDA-Public Use
  Company Number: IT-MACLEODS PHARMACEUTICALS US LTD-MAC2019021553

PATIENT

DRUGS (1)
  1. OLANZAPINE. [Suspect]
     Active Substance: OLANZAPINE
     Indication: SCHIZOPHRENIA
     Dosage: 10 MILLIGRAM, QD
     Route: 065

REACTIONS (7)
  - Colitis ischaemic [Recovering/Resolving]
  - Intestinal ischaemia [Recovering/Resolving]
  - Systemic infection [Recovering/Resolving]
  - Portal vein thrombosis [Recovering/Resolving]
  - Acute kidney injury [Recovering/Resolving]
  - Mesenteric vein thrombosis [Recovering/Resolving]
  - Pulmonary embolism [Recovering/Resolving]
